FAERS Safety Report 15704699 (Version 1)
Quarter: 2018Q4

REPORT INFORMATION
  Report Type: Spontaneous
  Country: GB (occurrence: GB)
  Receive Date: 20181210
  Receipt Date: 20181210
  Transmission Date: 20190205
  Serious: Yes (Other)
  Sender: FDA-Public Use
  Company Number: GB-TEVA-2018-GB-984920

PATIENT
  Age: 28 Year
  Sex: Female

DRUGS (2)
  1. CO-AMOXICLAV [Suspect]
     Active Substance: AMOXICILLIN\CLAVULANATE POTASSIUM
     Indication: KIDNEY INFECTION
     Dosage: 1500 MILLIGRAM DAILY;
     Route: 048
     Dates: start: 20181104, end: 20181111
  2. CITALOPRAM [Concomitant]
     Active Substance: CITALOPRAM HYDROBROMIDE

REACTIONS (3)
  - Rash generalised [Not Recovered/Not Resolved]
  - Dyspepsia [Recovered/Resolved]
  - Pruritus generalised [Not Recovered/Not Resolved]

NARRATIVE: CASE EVENT DATE: 20181104
